FAERS Safety Report 18087846 (Version 5)
Quarter: 2020Q4

REPORT INFORMATION
  Report Type: Report from Study
  Country: US (occurrence: US)
  Receive Date: 20200729
  Receipt Date: 20201103
  Transmission Date: 20210113
  Serious: Yes (Hospitalization, Other)
  Sender: FDA-Public Use
  Company Number: US-GILEAD-2020-0478271

PATIENT
  Sex: Male

DRUGS (4)
  1. TADALAFIL. [Concomitant]
     Active Substance: TADALAFIL
  2. REMODULIN [Concomitant]
     Active Substance: TREPROSTINIL
  3. AMBRISENTAN [Suspect]
     Active Substance: AMBRISENTAN
     Indication: PULMONARY ARTERIAL HYPERTENSION
     Dosage: 5 MG, QD
     Route: 048
     Dates: start: 20181009
  4. WARFARIN [Concomitant]
     Active Substance: WARFARIN

REACTIONS (7)
  - Infusion site erythema [Not Recovered/Not Resolved]
  - Post procedural drainage [Recovered/Resolved]
  - Off label use [Unknown]
  - Central venous catheterisation [Unknown]
  - Catheter site haemorrhage [Not Recovered/Not Resolved]
  - Catheterisation cardiac [Unknown]
  - Pulmonary arterial hypertension [Unknown]
